FAERS Safety Report 13022372 (Version 2)
Quarter: 2016Q4

REPORT INFORMATION
  Report Type: Spontaneous
  Country: US (occurrence: US)
  Receive Date: 20161213
  Receipt Date: 20161230
  Transmission Date: 20170207
  Serious: No
  Sender: FDA-Public Use
  Company Number: US-PFIZER INC-2016575015

PATIENT
  Age: 69 Year
  Sex: Male
  Weight: 81.65 kg

DRUGS (7)
  1. CARBIDOPA AND LEVODOPA [Concomitant]
     Active Substance: CARBIDOPA\LEVODOPA
     Indication: PARKINSON^S DISEASE
     Dosage: 7 DF, [CARBIDOPA: 25 MG]-[ LEVODOPA: 10 MG](2 TABLETS MORNING;5 TABLETS SPACED THROUGH THE DAY)
  2. BENZTROPINE [Concomitant]
     Active Substance: BENZTROPINE
     Indication: MUSCLE DISORDER
     Dosage: 0.5 MG, 3X/DAY
     Route: 048
  3. LYRICA [Suspect]
     Active Substance: PREGABALIN
     Indication: PARKINSON^S DISEASE
  4. DONEPEZIL. [Concomitant]
     Active Substance: DONEPEZIL
     Indication: MEMORY IMPAIRMENT
     Dosage: 10 MG, 1X/DAY(IN THE MORNING WHEN HE WAKES UP)
     Route: 048
  5. LYRICA [Suspect]
     Active Substance: PREGABALIN
     Indication: NEUROPATHY PERIPHERAL
     Dosage: 100 MG, 3X/DAY
     Route: 048
  6. TAMSULOSIN [Concomitant]
     Active Substance: TAMSULOSIN
     Indication: BLADDER DISORDER
     Dosage: 0.4 MG, 2X/DAY
     Route: 048
  7. LATANOPROST. [Concomitant]
     Active Substance: LATANOPROST
     Indication: GLAUCOMA
     Dosage: 2 GTT, 1X/DAY(ONE DROP IN EACH EYE AT BEDTIME)

REACTIONS (6)
  - Drug effect decreased [Not Recovered/Not Resolved]
  - Off label use [Unknown]
  - Drug effect incomplete [Unknown]
  - Drug ineffective [Unknown]
  - Gait disturbance [Unknown]
  - Muscle tightness [Unknown]
